FAERS Safety Report 23185437 (Version 1)
Quarter: 2023Q4

REPORT INFORMATION
  Report Type: Spontaneous
  Country: US (occurrence: US)
  Receive Date: 20231115
  Receipt Date: 20231115
  Transmission Date: 20240109
  Serious: Yes (Life-Threatening, Hospitalization, Other)
  Sender: FDA-Public Use
  Company Number: US-MLMSERVICE-20231101-4632262-1

PATIENT
  Age: 43 Year
  Sex: Male

DRUGS (2)
  1. METFORMIN [Suspect]
     Active Substance: METFORMIN HYDROCHLORIDE
     Indication: Product used for unknown indication
     Dosage: 480000 MILLIGRAM IN TOTAL
     Route: 048
  2. FUROSEMIDE [Suspect]
     Active Substance: FUROSEMIDE
     Indication: Hypervolaemia
     Dosage: 120 MILLIGRAM
     Route: 042

REACTIONS (7)
  - Renal tubular necrosis [Recovering/Resolving]
  - Hypervolaemia [Recovering/Resolving]
  - Acute kidney injury [Recovering/Resolving]
  - Renal ischaemia [Recovering/Resolving]
  - Lactic acidosis [Recovering/Resolving]
  - Intentional overdose [Recovering/Resolving]
  - Drug ineffective [Unknown]
